FAERS Safety Report 8066154-3 (Version None)
Quarter: 2012Q1

REPORT INFORMATION
  Report Type: 
  Country: None (occurrence: None)
  Receive Date: 20120124
  Receipt Date: 20110629
  Transmission Date: 20120608
  Serious: No
  Sender: FDA-Public Use
  Company Number: US-BRISTOL-MYERS SQUIBB COMPANY-15641863

PATIENT
  Age: 10 Year
  Sex: Male
  Weight: 54 kg

DRUGS (1)
  1. ABILIFY [Suspect]
     Indication: AUTISM
     Dosage: 1DF = 2ML IN MORONING AND 5ML AT NIGHT,SWITCHED TO TABLET PREPATION
     Route: 048
     Dates: start: 20100801

REACTIONS (5)
  - INSOMNIA [None]
  - PSYCHOMOTOR HYPERACTIVITY [None]
  - WEIGHT INCREASED [None]
  - INCREASED APPETITE [None]
  - AGGRESSION [None]
